FAERS Safety Report 6523591-3 (Version None)
Quarter: 2009Q4

REPORT INFORMATION
  Report Type: 
  Country: None (occurrence: None)
  Receive Date: 20091231
  Receipt Date: 20091221
  Transmission Date: 20100525
  Serious: Yes (Hospitalization)
  Sender: FDA-Public Use
  Company Number: PHHY2009CL57562

PATIENT
  Age: 70 Year
  Sex: Female

DRUGS (1)
  1. TAREG D [Suspect]
     Dosage: ONE TABLET (160/12.5 MG) PER DAY
     Dates: start: 20090701

REACTIONS (1)
  - BLOOD PRESSURE INCREASED [None]
